FAERS Safety Report 4425227-4 (Version None)
Quarter: 2004Q3

REPORT INFORMATION
  Report Type: 
  Country: None (occurrence: None)
  Receive Date: 20040813
  Receipt Date: 20040802
  Transmission Date: 20050211
  Serious: Yes (Other)
  Sender: FDA-Public Use
  Company Number: US-JNJFOC-20040306080

PATIENT
  Sex: Female
  Weight: 75.3 kg

DRUGS (14)
  1. REMICADE [Suspect]
     Route: 042
  2. REMICADE [Suspect]
     Route: 042
  3. REMICADE [Suspect]
     Indication: CROHN'S DISEASE
     Route: 042
  4. ALLEGRA [Concomitant]
  5. FOSAMAX [Concomitant]
  6. OXYCONTIN [Concomitant]
  7. PERCOCET [Concomitant]
  8. PERCOCET [Concomitant]
  9. B-12 [Concomitant]
  10. PREVACID [Concomitant]
  11. HUMALOG [Concomitant]
  12. EFFEXOR XR [Concomitant]
  13. PREDNISONE [Concomitant]
  14. PREDNISONE [Concomitant]

REACTIONS (8)
  - BLOOD PRESSURE INCREASED [None]
  - CUSHINGOID [None]
  - DEEP VEIN THROMBOSIS [None]
  - FEELING ABNORMAL [None]
  - INFUSION SITE OEDEMA [None]
  - INFUSION SITE PAIN [None]
  - PHLEBITIS [None]
  - URINARY TRACT INFECTION [None]
